FAERS Safety Report 13535511 (Version 2)
Quarter: 2017Q2

REPORT INFORMATION
  Report Type: Report from Study
  Country: ZA (occurrence: ZA)
  Receive Date: 20170511
  Receipt Date: 20170519
  Transmission Date: 20170830
  Serious: Yes (Death, Hospitalization, Other)
  Sender: FDA-Public Use
  Company Number: ZA-AMGEN-ZAFSL2017070754

PATIENT
  Age: 51 Year
  Sex: Male

DRUGS (1)
  1. ARANESP [Suspect]
     Active Substance: DARBEPOETIN ALFA
     Indication: ANAEMIA
     Dosage: 20 UNK, Q6WK
     Route: 065
     Dates: start: 201103, end: 201702

REACTIONS (3)
  - Hypoxia [Unknown]
  - Endoscopy upper gastrointestinal tract [Unknown]
  - Death [Fatal]

NARRATIVE: CASE EVENT DATE: 201702
